FAERS Safety Report 5288173-2 (Version None)
Quarter: 2007Q2

REPORT INFORMATION
  Report Type: 
  Country: None (occurrence: None)
  Receive Date: 20070402
  Receipt Date: 20070402
  Transmission Date: 20071010
  Serious: Yes (Disabling, Other)
  Sender: FDA-Public Use
  Company Number: None

PATIENT
  Age: 37 Year
  Sex: Female
  Weight: 61.2356 kg

DRUGS (2)
  1. CLINDAMYCIN [Suspect]
     Indication: DENTAL DISORDER PROPHYLAXIS
     Dosage: 250 MG X4 PO
     Route: 048
     Dates: start: 20060601, end: 20060610
  2. CLINDAMYCIN [Suspect]
     Indication: PERIODONTAL OPERATION
     Dosage: 250 MG X4 PO
     Route: 048
     Dates: start: 20060601, end: 20060610

REACTIONS (4)
  - CLOSTRIDIUM DIFFICILE TOXIN TEST POSITIVE [None]
  - DIARRHOEA [None]
  - DISEASE RECURRENCE [None]
  - MALAISE [None]
